FAERS Safety Report 15518263 (Version 7)
Quarter: 2019Q3

REPORT INFORMATION
  Report Type: Spontaneous
  Country: US (occurrence: US)
  Receive Date: 20181017
  Receipt Date: 20190708
  Transmission Date: 20191004
  Serious: Yes (Other)
  Sender: FDA-Public Use
  Company Number: US-PFIZER INC-2018414579

PATIENT
  Age: 63 Year
  Sex: Female
  Weight: 95 kg

DRUGS (3)
  1. XELJANZ XR [Suspect]
     Active Substance: TOFACITINIB CITRATE
     Indication: PSORIASIS
     Dosage: 11 MG, 2X/DAY
     Route: 048
     Dates: start: 201811
  2. XELJANZ XR [Suspect]
     Active Substance: TOFACITINIB CITRATE
     Indication: PSORIATIC ARTHROPATHY
     Dosage: 11 MG, 1X/DAY
     Route: 048
     Dates: start: 20181011
  3. XELJANZ XR [Suspect]
     Active Substance: TOFACITINIB CITRATE
     Indication: PUSTULAR PSORIASIS
     Dosage: UNK

REACTIONS (8)
  - Off label use [Unknown]
  - Headache [Not Recovered/Not Resolved]
  - Gait disturbance [Recovered/Resolved]
  - Product use issue [Unknown]
  - Intentional product use issue [Unknown]
  - Tuberculosis [Unknown]
  - Pain [Unknown]
  - Skin exfoliation [Recovered/Resolved]

NARRATIVE: CASE EVENT DATE: 20181011
